FAERS Safety Report 7083344-7 (Version None)
Quarter: 2010Q4

REPORT INFORMATION
  Report Type: 
  Country: None (occurrence: None)
  Receive Date: 20101104
  Receipt Date: 20101101
  Transmission Date: 20110411
  Serious: Yes (Death, Other)
  Sender: FDA-Public Use
  Company Number: PHHY2010US69119

PATIENT
  Sex: Male
  Weight: 63.96 kg

DRUGS (5)
  1. EXJADE [Suspect]
     Indication: IRON METABOLISM DISORDER
     Dosage: 750 MG, DAILY
     Route: 048
     Dates: start: 20090813, end: 20100928
  2. LEVOXYL [Concomitant]
     Dosage: 125 UG, QD
  3. FUROSEMIDE [Concomitant]
     Dosage: 20 MG, QD
  4. POLYETHYLENE GLYCOL [Concomitant]
     Indication: CONSTIPATION
  5. VITAMIN D [Concomitant]
     Dosage: 1 DF, QD

REACTIONS (2)
  - DEATH [None]
  - DYSPNOEA EXERTIONAL [None]
